FAERS Safety Report 20118380 (Version 1)
Quarter: 2021Q4

REPORT INFORMATION
  Report Type: Spontaneous
  Country: US (occurrence: US)
  Receive Date: 20211126
  Receipt Date: 20211126
  Transmission Date: 20220303
  Serious: Yes (Disabling, Other)
  Sender: FDA-Public Use
  Company Number: US-PURDUE-USA-2020-0218708

PATIENT
  Sex: Male

DRUGS (2)
  1. MS CONTIN [Suspect]
     Active Substance: MORPHINE SULFATE
     Indication: Back disorder
     Dosage: UNKNOWN
     Route: 048
     Dates: start: 2000, end: 2012
  2. MORPHINE SULFATE [Suspect]
     Active Substance: MORPHINE SULFATE
     Indication: Back disorder
     Dosage: UNKNOWN
     Route: 048
     Dates: start: 2000, end: 2012

REACTIONS (3)
  - Overdose [Unknown]
  - Drug dependence [Recovering/Resolving]
  - Mental disorder [Unknown]
